FAERS Safety Report 20378755 (Version 1)
Quarter: 2022Q1

REPORT INFORMATION
  Report Type: Spontaneous
  Country: US (occurrence: None)
  Receive Date: 20220125
  Receipt Date: 20220125
  Transmission Date: 20220423
  Serious: Yes (Death)
  Sender: FDA-Public Use
  Company Number: None

PATIENT
  Age: 93 Year
  Sex: Female

DRUGS (7)
  1. MAVYRET [Suspect]
     Active Substance: GLECAPREVIR\PIBRENTASVIR
     Indication: Hepatitis C
     Dosage: FREQUENCY : DAILY;?
     Route: 048
     Dates: start: 20211216
  2. cozaar 25mg tablet [Concomitant]
  3. Synthroid 0.075mcg tablet [Concomitant]
  4. Furosemide 20mg tablet [Concomitant]
  5. GABAPENTIN [Concomitant]
     Active Substance: GABAPENTIN
  6. Famotidine 20mg tablet [Concomitant]
  7. PREDNISONE [Concomitant]
     Active Substance: PREDNISONE

REACTIONS (1)
  - Death [None]

NARRATIVE: CASE EVENT DATE: 20220121
